FAERS Safety Report 9490632 (Version 2)
Quarter: 2013Q3

REPORT INFORMATION
  Report Type: Spontaneous
  Country: DE (occurrence: DE)
  Receive Date: 20130830
  Receipt Date: 20130923
  Transmission Date: 20140515
  Serious: Yes (Other)
  Sender: FDA-Public Use
  Company Number: PHHY2013DE094347

PATIENT
  Sex: Male

DRUGS (1)
  1. EXFORGE [Suspect]
     Dosage: 1 DF, UNK (160 MG VALS, 5 MG AMLO)

REACTIONS (4)
  - Neoplasm [Unknown]
  - Hypertension [Unknown]
  - Drug ineffective [Unknown]
  - Wrong technique in drug usage process [Unknown]
